FAERS Safety Report 7708018-8 (Version None)
Quarter: 2011Q3

REPORT INFORMATION
  Report Type: 
  Country: None (occurrence: None)
  Receive Date: 20110824
  Receipt Date: 20110816
  Transmission Date: 20111222
  Serious: Yes (Life-Threatening)
  Sender: FDA-Public Use
  Company Number: JP-CELGENEUS-087-CCAZA-11081299

PATIENT
  Age: 76 Year
  Sex: Female

DRUGS (9)
  1. DOGMATYL [Concomitant]
     Route: 065
  2. LANSOPRAZOLE [Concomitant]
     Route: 065
  3. AZACITIDINE [Suspect]
     Dosage: 40 MILLIGRAM
     Route: 041
     Dates: start: 20110725, end: 20110727
  4. AZACITIDINE [Suspect]
     Indication: MYELODYSPLASTIC SYNDROME
     Dosage: 40 MILLIGRAM
     Route: 041
     Dates: start: 20110323
  5. AZACITIDINE [Suspect]
     Dosage: 40 MILLIGRAM
     Route: 041
     Dates: start: 20110719, end: 20110722
  6. CRESTOR [Concomitant]
     Route: 065
  7. DILTIAZEM HCL [Concomitant]
     Route: 065
  8. SELBEX [Concomitant]
     Route: 065
  9. ISOSORBIDE DINITRATE [Concomitant]
     Route: 065

REACTIONS (1)
  - PNEUMONIA [None]
